FAERS Safety Report 4530836-8 (Version None)
Quarter: 2004Q4

REPORT INFORMATION
  Report Type: 
  Country: None (occurrence: None)
  Receive Date: 20041217
  Receipt Date: 20041208
  Transmission Date: 20050328
  Serious: Yes (Death, Hospitalization)
  Sender: FDA-Public Use
  Company Number: US-MERCK-0412USA01144

PATIENT
  Age: 16 Year
  Sex: Male

DRUGS (1)
  1. DECADRON [Suspect]
     Indication: STEROID THERAPY
     Route: 065
     Dates: start: 20020101

REACTIONS (3)
  - ASPERGILLOSIS [None]
  - BRAIN OEDEMA [None]
  - PNEUMONIA ASPIRATION [None]
